FAERS Safety Report 6906766 (Version 12)
Quarter: 2014Q1

REPORT INFORMATION
  Report Type: Spontaneous
  Country: US (occurrence: US)
  Receive Date: 20090211
  Receipt Date: 20140228
  Transmission Date: 20141002
  Serious: Yes (Death, Other)
  Sender: FDA-Public Use
  Company Number: PHEH2009US01467

PATIENT
  Sex: Female
  Weight: 54.88 kg

DRUGS (19)
  1. ZOMETA [Suspect]
     Indication: METASTASES TO BONE
     Dosage: 3.5 MG, QMO
     Route: 042
     Dates: start: 2003, end: 200503
  2. ZOMETA [Suspect]
     Indication: NEOPLASM MALIGNANT
  3. ZOMETA [Suspect]
     Indication: BREAST CANCER METASTATIC
  4. DILAUDID [Concomitant]
  5. ASPIRIN ^BAYER^ [Concomitant]
  6. THIAMINE [Concomitant]
  7. MOTRIN [Concomitant]
  8. DIAZEPAM [Concomitant]
  9. NORVASC                                 /DEN/ [Concomitant]
  10. INSULIN LISPRO [Concomitant]
  11. SENNOSIDE [Concomitant]
  12. PREDNISONE [Concomitant]
  13. FASLODEX [Concomitant]
  14. TAMOXIFEN [Concomitant]
  15. FEMARA [Concomitant]
  16. EXEMESTANE [Concomitant]
     Dosage: 25 MG, QD
     Route: 048
  17. SPIRONOLACTONE [Concomitant]
     Dosage: 25 MG, QD
     Route: 048
  18. ZOLOFT [Concomitant]
     Dosage: 50 MG, QD
     Route: 048
  19. LOPRESSOR [Concomitant]
     Dosage: 100 MG, BID
     Route: 048

REACTIONS (101)
  - Osteonecrosis of jaw [Fatal]
  - Breast cancer [Fatal]
  - Osteolysis [Fatal]
  - Hypophagia [Fatal]
  - General physical health deterioration [Fatal]
  - Jaw disorder [Fatal]
  - Bone disorder [Fatal]
  - Pain in jaw [Fatal]
  - Tooth abscess [Fatal]
  - Dental caries [Fatal]
  - Mastication disorder [Fatal]
  - Gingival bleeding [Fatal]
  - Gingival swelling [Fatal]
  - Gingival pain [Fatal]
  - Purulent discharge [Fatal]
  - Actinomycosis [Fatal]
  - Osteomyelitis [Fatal]
  - Decreased appetite [Fatal]
  - Weight decreased [Fatal]
  - Tooth loss [Fatal]
  - Oral infection [Fatal]
  - Bone loss [Fatal]
  - Hydronephrosis [Unknown]
  - Cholelithiasis [Unknown]
  - Pulmonary vascular disorder [Unknown]
  - Aortic disorder [Unknown]
  - Aortic arteriosclerosis [Unknown]
  - Neurodegenerative disorder [Unknown]
  - Compression fracture [Unknown]
  - Intervertebral disc space narrowing [Unknown]
  - Spinal column stenosis [Unknown]
  - Pathological fracture [Unknown]
  - Hypertensive heart disease [Unknown]
  - Hypertension [Unknown]
  - Haemorrhagic anaemia [Unknown]
  - Hypercalcaemia of malignancy [Unknown]
  - Malnutrition [Unknown]
  - Fall [Unknown]
  - Cerebrovascular accident [Unknown]
  - VIIth nerve paralysis [Unknown]
  - Dysarthria [Unknown]
  - Hepatic cirrhosis [Unknown]
  - Psoriasis [Unknown]
  - Depression [Unknown]
  - Upper limb fracture [Unknown]
  - Neoplasm progression [Unknown]
  - Neoplasm malignant [Unknown]
  - Metastases to peritoneum [Unknown]
  - Metastases to spine [Unknown]
  - Metastases to bone [Unknown]
  - Dementia [Unknown]
  - Pleural fibrosis [Unknown]
  - Pulmonary congestion [Unknown]
  - Cardiac valve disease [Unknown]
  - Carotid artery stenosis [Unknown]
  - Myocardial infarction [Unknown]
  - Ventricular tachycardia [Unknown]
  - Arrhythmia [Unknown]
  - Left atrial dilatation [Unknown]
  - Cardiomegaly [Unknown]
  - Gastrooesophageal reflux disease [Unknown]
  - Nausea [Unknown]
  - Dysphagia [Unknown]
  - Oesophagitis [Unknown]
  - Gastritis erosive [Unknown]
  - Renal cyst [Unknown]
  - Aspiration [Unknown]
  - Hallucination, visual [Unknown]
  - Mental status changes [Unknown]
  - Mitral valve incompetence [Unknown]
  - Aortic valve incompetence [Unknown]
  - Bone pain [Unknown]
  - Anxiety [Unknown]
  - Agitation [Unknown]
  - Occult blood [Unknown]
  - Hypokalaemia [Unknown]
  - Ascites [Not Recovered/Not Resolved]
  - Waist circumference increased [Unknown]
  - Asthenia [Unknown]
  - Hyperglycaemia [Unknown]
  - Confusional state [Unknown]
  - Skin exfoliation [Unknown]
  - Balance disorder [Unknown]
  - Urinary retention [Unknown]
  - Abdominal distension [Unknown]
  - Lymphadenopathy [Unknown]
  - Intervertebral disc protrusion [Unknown]
  - Brain stem infarction [Unknown]
  - Spinal pain [Unknown]
  - Rales [Unknown]
  - Back pain [Unknown]
  - Neck pain [Recovering/Resolving]
  - Musculoskeletal stiffness [Recovering/Resolving]
  - Muscle spasms [Unknown]
  - Oedema peripheral [Unknown]
  - Ecchymosis [Unknown]
  - Hepatic cancer [Unknown]
  - Second primary malignancy [Unknown]
  - Implant site extravasation [Unknown]
  - Arteriosclerosis [Unknown]
  - Goitre [Unknown]
